FAERS Safety Report 4687734-9 (Version None)
Quarter: 2005Q2

REPORT INFORMATION
  Report Type: 
  Country: None (occurrence: None)
  Receive Date: 20050610
  Receipt Date: 20050509
  Transmission Date: 20051028
  Serious: Yes (Death, Hospitalization)
  Sender: FDA-Public Use
  Company Number: JP-SANOFI-SYNTHELABO-A01200503194

PATIENT
  Age: 1006 Month
  Sex: Male

DRUGS (13)
  1. MYSLEE [Suspect]
     Indication: INSOMNIA
     Route: 048
     Dates: start: 20050407, end: 20050419
  2. SEROQUEL [Suspect]
     Indication: INSOMNIA
     Route: 048
     Dates: start: 20050407, end: 20050419
  3. BLOPRESS [Suspect]
     Indication: CARDIAC FAILURE
     Dosage: 4 MG
     Route: 048
     Dates: start: 20050407, end: 20050419
  4. LOXONIN [Concomitant]
     Indication: PAIN
     Dosage: 120 MG
     Route: 048
     Dates: start: 20050414, end: 20050419
  5. MOBIC [Suspect]
     Indication: PAIN
     Dosage: 10 MG
     Route: 048
     Dates: start: 20050414, end: 20050419
  6. ARGATROBAN [Suspect]
     Indication: CEREBRAL INFARCTION
     Dosage: 60 MG
     Route: 065
     Dates: start: 20050406, end: 20050413
  7. LANIRAPID [Concomitant]
     Indication: CARDIAC FAILURE
     Dosage: 0.5 MG
     Route: 048
     Dates: end: 20050419
  8. ITOROL [Concomitant]
     Indication: CARDIAC FAILURE
     Dosage: 20 MG
     Route: 048
     Dates: end: 20050419
  9. LASIX [Concomitant]
     Indication: CARDIAC FAILURE
     Dosage: 20 MG
     Route: 048
  10. ASPIRIN [Concomitant]
     Indication: CARDIAC FAILURE
     Dosage: 0.1 G
     Route: 048
     Dates: end: 20050419
  11. ASPIRIN [Concomitant]
     Indication: TRANSIENT ISCHAEMIC ATTACK
     Dosage: 0.1 G
     Route: 048
     Dates: end: 20050419
  12. WARFARIN SODIUM [Concomitant]
     Indication: TRANSIENT ISCHAEMIC ATTACK
     Dosage: 1.5 MG
     Route: 048
     Dates: end: 20050419
  13. GASTER [Concomitant]
     Indication: GASTRITIS
     Dosage: 20 MG
     Route: 048
     Dates: end: 20050419

REACTIONS (4)
  - HEPATIC FAILURE [None]
  - HEPATITIS [None]
  - JAUNDICE [None]
  - SEPSIS [None]
